FAERS Safety Report 23157951 (Version 1)
Quarter: 2023Q4

REPORT INFORMATION
  Report Type: Spontaneous
  Country: NL (occurrence: NL)
  Receive Date: 20231108
  Receipt Date: 20231108
  Transmission Date: 20240110
  Serious: Yes (Life-Threatening, Hospitalization, Other)
  Sender: FDA-Public Use
  Company Number: NL-LRB-00920024

PATIENT
  Age: 73 Year
  Sex: Female
  Weight: 75 kg

DRUGS (16)
  1. FLUCLOXACILLIN [Interacting]
     Active Substance: FLUCLOXACILLIN
     Indication: Staphylococcal bacteraemia
     Dosage: 12G/DG
     Route: 065
     Dates: start: 20230911, end: 20231003
  2. FLUCLOXACILLIN [Interacting]
     Active Substance: FLUCLOXACILLIN
     Indication: Aortic valve replacement
  3. ACETAMINOPHEN [Interacting]
     Active Substance: ACETAMINOPHEN
     Indication: Osteoarthritis
     Dosage: 1000 MILLIGRAM, 2 PIECES 4 TIMES A DAY.
     Route: 065
     Dates: start: 20230906, end: 20231003
  4. ACETAMINOPHEN [Interacting]
     Active Substance: ACETAMINOPHEN
     Indication: Postoperative care
  5. FUROSEMIDE [Concomitant]
     Active Substance: FUROSEMIDE
     Indication: Product used for unknown indication
     Dosage: TABLET, 40 MG (MILLIGRAM)
     Route: 065
  6. LEVOCETIRIZINE DIHYDROCHLORIDE [Concomitant]
     Active Substance: LEVOCETIRIZINE DIHYDROCHLORIDE
     Indication: Product used for unknown indication
     Dosage: FILM-COATED TABLET, 5 MG (MILLIGRAMS)
     Route: 065
  7. CHOLECALCIFEROL [Concomitant]
     Active Substance: CHOLECALCIFEROL
     Indication: Product used for unknown indication
     Dosage: ORAL SOLUTION, 25000 IU/ML (UNITS PER MILLILITER)
     Route: 065
  8. AMITRIPTYLINE [Concomitant]
     Active Substance: AMITRIPTYLINE
     Indication: Product used for unknown indication
     Dosage: TABLET, 10 MG (MILLIGRAM)
     Route: 065
  9. HYDROXYCHLOROQUINE [Concomitant]
     Active Substance: HYDROXYCHLOROQUINE
     Indication: Product used for unknown indication
     Dosage: COATED TABLET, 200 MG (MILLIGRAM)
     Route: 065
  10. CLOPIDOGREL [Concomitant]
     Active Substance: CLOPIDOGREL BISULFATE
     Indication: Product used for unknown indication
     Dosage: TABLET, 75 MG (MILLIGRAM)
     Route: 065
  11. NIFEDIPINE [Concomitant]
     Active Substance: NIFEDIPINE
     Indication: Product used for unknown indication
     Dosage: MODIFIED-RELEASE TABLET, 30 MG (MILLIGRAM)
     Route: 065
  12. PREDNISOLONE [Concomitant]
     Active Substance: PREDNISOLONE
     Indication: Product used for unknown indication
     Dosage: TABLET, 5 MG (MILLIGRAM)
     Route: 065
  13. PANTOPRAZOLE SODIUM [Concomitant]
     Active Substance: PANTOPRAZOLE SODIUM
     Indication: Product used for unknown indication
     Dosage: TABLET MSR 40MG, 1 PIECE TWICE A DAY
  14. CANDESARTAN [Concomitant]
     Active Substance: CANDESARTAN
     Indication: Product used for unknown indication
     Dosage: TABLET, 4 MG (MILLIGRAM)
     Route: 065
  15. ALENDRONIC ACID [Concomitant]
     Active Substance: ALENDRONIC ACID
     Indication: Product used for unknown indication
     Dosage: TABLET, 70 MG (MILLIGRAM)
     Route: 065
  16. DEXTRAN [Concomitant]
     Active Substance: DEXTRAN
     Indication: Product used for unknown indication
     Dosage: BOTTLE 15ML, 1 DROP IN BOTH EYES 2-4 TIMES A DAY
     Route: 065

REACTIONS (2)
  - Drug interaction [Recovering/Resolving]
  - Metabolic acidosis [Recovering/Resolving]
